FAERS Safety Report 5045845-2 (Version None)
Quarter: 2006Q3

REPORT INFORMATION
  Report Type: 
  Country: None (occurrence: None)
  Receive Date: 20060710
  Receipt Date: 20060629
  Transmission Date: 20061208
  Serious: Yes (Hospitalization)
  Sender: FDA-Public Use
  Company Number: PHHO2006BE10722

PATIENT
  Age: 83 Year
  Sex: Female

DRUGS (5)
  1. ASAFLOW [Concomitant]
  2. DAFLON [Concomitant]
  3. DYTENZIDE [Concomitant]
  4. LANOXIN [Concomitant]
  5. EXELON [Suspect]
     Indication: DEMENTIA
     Dosage: 3 MG, BID
     Route: 048
     Dates: start: 20050401, end: 20051114

REACTIONS (10)
  - BILE DUCT OBSTRUCTION [None]
  - CHOLECYSTITIS [None]
  - CHOLELITHIASIS [None]
  - CHOLESTASIS [None]
  - DELUSION [None]
  - ENDOSCOPIC RETROGRADE CHOLANGIOPANCREATOGRAPHY [None]
  - LIVER FUNCTION TEST ABNORMAL [None]
  - MENTAL IMPAIRMENT [None]
  - RASH PRURITIC [None]
  - RESTLESSNESS [None]
